FAERS Safety Report 5100321-3 (Version None)
Quarter: 2006Q3

REPORT INFORMATION
  Report Type: 
  Country: None (occurrence: None)
  Receive Date: 20060731
  Receipt Date: 20060523
  Transmission Date: 20061208
  Serious: No
  Sender: FDA-Public Use
  Company Number: 2006PV014314

PATIENT
  Age: 53 Year
  Sex: Female
  Weight: 82.1011 kg

DRUGS (8)
  1. BYETTA [Suspect]
     Indication: DIABETES MELLITUS NON-INSULIN-DEPENDENT
     Dosage: 5 MCG;BID;SC
     Route: 058
     Dates: start: 20060401
  2. VICODIN [Suspect]
     Indication: PAIN IN EXTREMITY
     Dosage: PRN;PO
     Route: 048
     Dates: start: 20060509, end: 20060509
  3. GLIPIZIDE [Concomitant]
  4. ACTOS [Concomitant]
  5. METFORMIN HCL [Concomitant]
  6. TYLENOL [Concomitant]
  7. INDOCET [Concomitant]
  8. METAMUCIL [Concomitant]

REACTIONS (4)
  - DIARRHOEA [None]
  - DRUG HYPERSENSITIVITY [None]
  - NAUSEA [None]
  - WEIGHT DECREASED [None]
